FAERS Safety Report 11854265 (Version 1)
Quarter: 2015Q4

REPORT INFORMATION
  Report Type: Spontaneous
  Country: US (occurrence: US)
  Receive Date: 20151220
  Receipt Date: 20151220
  Transmission Date: 20160305
  Serious: No
  Sender: FDA-Public Use
  Company Number: US-ZYDUS-007282

PATIENT
  Sex: Male

DRUGS (4)
  1. PEGINTERFERON ALFA-2B [Concomitant]
     Active Substance: PEGINTERFERON ALFA-2B
  2. RIBAVIRIN. [Suspect]
     Active Substance: RIBAVIRIN
     Indication: HEPATITIS C
     Dosage: 400MG-EVERY AM + PM-ORAL
     Route: 048
     Dates: start: 201410
  3. BOCEPREVIR [Concomitant]
     Active Substance: BOCEPREVIR
  4. SOVALDI [Concomitant]
     Active Substance: SOFOSBUVIR

REACTIONS (3)
  - Platelet count decreased [Recovered/Resolved]
  - Pruritus [Not Recovered/Not Resolved]
  - Pruritus generalised [None]

NARRATIVE: CASE EVENT DATE: 2014
